FAERS Safety Report 5246751-0 (Version None)
Quarter: 2007Q1

REPORT INFORMATION
  Report Type: 
  Country: None (occurrence: None)
  Receive Date: 20070220
  Receipt Date: 20070212
  Transmission Date: 20070707
  Serious: Yes (Other)
  Sender: FDA-Public Use
  Company Number: S07-USA-00457-01

PATIENT
  Age: 50 Year
  Sex: Female
  Weight: 72.5755 kg

DRUGS (3)
  1. LEXAPRO [Suspect]
     Indication: ANXIETY
     Dosage: 20 MG QD PO
     Route: 048
     Dates: start: 20030702
  2. SEASONALE (ETHINYL ESTRADIOL/LEVONORGESTREL) [Concomitant]
  3. CALCIUM [Concomitant]

REACTIONS (4)
  - ANKLE FRACTURE [None]
  - BASEDOW'S DISEASE [None]
  - FALL [None]
  - HYPOTHYROIDISM [None]
